FAERS Safety Report 14274982 (Version 2)
Quarter: 2018Q2

REPORT INFORMATION
  Report Type: Spontaneous
  Country: DE (occurrence: DE)
  Receive Date: 20171211
  Receipt Date: 20180620
  Transmission Date: 20180711
  Serious: Yes (Hospitalization, Other)
  Sender: FDA-Public Use
  Company Number: DE-OTSUKA-2017_016475

PATIENT
  Age: 51 Year
  Sex: Female
  Weight: 98 kg

DRUGS (10)
  1. ABILIFY [Suspect]
     Active Substance: ARIPIPRAZOLE
     Indication: BIPOLAR DISORDER
     Dosage: 5 MG, QD
     Route: 048
     Dates: start: 20170720, end: 20170721
  2. L-THYROXIN [Concomitant]
     Active Substance: LEVOTHYROXINE SODIUM
     Indication: HYPOTHYROIDISM
     Dosage: 150 ?G, QD (150-0-0-0 ?G)
     Route: 048
     Dates: start: 20170628, end: 20170810
  3. RAMIPRIL. [Concomitant]
     Active Substance: RAMIPRIL
     Indication: HYPERTENSION
     Dosage: 5-0-2.5-0 MG, QD
     Route: 048
     Dates: start: 20170628, end: 20170810
  4. CETIRIZINE [Concomitant]
     Active Substance: CETIRIZINE HYDROCHLORIDE
     Indication: HYPERSENSITIVITY
     Dosage: 10 MG, QD (0-0-0-10 MG)
     Route: 048
     Dates: start: 20170628, end: 20170810
  5. BUDESONIDE. [Concomitant]
     Active Substance: BUDESONIDE
     Indication: ASTHMA
     Dosage: 0.2 MG, (0.2MG 2 STROKES)
     Route: 055
     Dates: start: 20170628, end: 20170810
  6. NOVORAPID [Concomitant]
     Active Substance: INSULIN ASPART
     Indication: TYPE 1 DIABETES MELLITUS
     Dosage: UNK
     Route: 058
     Dates: start: 20170628, end: 20170810
  7. COTRIMOXAZOLE [Concomitant]
     Active Substance: SULFAMETHOXAZOLE\TRIMETHOPRIM
     Indication: URINARY TRACT INFECTION
     Dosage: UNK
     Route: 065
     Dates: start: 20170714, end: 20170717
  8. MILNACIPRAN [Concomitant]
     Active Substance: MILNACIPRAN
     Indication: BIPOLAR DISORDER
     Dosage: 25 MG, QD (25-0-0-0 MG)
     Route: 048
     Dates: start: 20170628, end: 20170810
  9. PANTOPRAZOLE [Concomitant]
     Active Substance: PANTOPRAZOLE
     Indication: DYSPEPSIA
     Dosage: 40 MG, QD (0-0-40-0 MG)
     Route: 048
     Dates: start: 20170628, end: 20170810
  10. MAGNESIUM VERLA [Concomitant]
     Active Substance: MAGNESIUM
     Indication: PRODUCT USED FOR UNKNOWN INDICATION
     Dosage: UNK, QD (0-0-1-0)
     Route: 048

REACTIONS (3)
  - Hyperglycaemia [Recovered/Resolved]
  - Headache [Recovered/Resolved]
  - Prescribed underdose [Unknown]

NARRATIVE: CASE EVENT DATE: 20170720
